FAERS Safety Report 8557336-2 (Version None)
Quarter: 2012Q3

REPORT INFORMATION
  Report Type: 
  Country: None (occurrence: None)
  Receive Date: 20120720
  Receipt Date: 20120709
  Transmission Date: 20120928
  Serious: Yes (Life-Threatening, Hospitalization, Other)
  Sender: FDA-Public Use
  Company Number: 2012P1048955

PATIENT
  Age: 68 Year
  Sex: Male

DRUGS (11)
  1. SITAGLIPTIN [Concomitant]
  2. COLCHICINE [Suspect]
     Indication: GOUT
  3. ASPIRIN [Concomitant]
  4. RAMIPRIL [Concomitant]
  5. ATORVASTATIN [Concomitant]
  6. DIPHENHYDRAMINE HCL [Concomitant]
  7. METFORMIN HYDROCHLORIDE [Concomitant]
  8. EPINEPHRINE [Suspect]
     Indication: ANAPHYLACTIC REACTION
     Dosage: 0.3 MG; IM
     Route: 030
  9. METOPROLOL TARTRATE [Concomitant]
  10. CELECOXIB [Suspect]
     Indication: GOUT
  11. GLIPIZIDE [Concomitant]

REACTIONS (9)
  - CHEST PAIN [None]
  - CORONARY ARTERY THROMBOSIS [None]
  - ANAPHYLACTIC REACTION [None]
  - ELECTROCARDIOGRAM ST SEGMENT DEPRESSION [None]
  - LOSS OF CONSCIOUSNESS [None]
  - EXTRASYSTOLES [None]
  - HEART RATE DECREASED [None]
  - TACHYCARDIA [None]
  - TROPONIN I INCREASED [None]
